FAERS Safety Report 20490540 (Version 1)
Quarter: 2022Q1

REPORT INFORMATION
  Report Type: Spontaneous
  Country: JP (occurrence: JP)
  Receive Date: 20220218
  Receipt Date: 20220218
  Transmission Date: 20220423
  Serious: Yes (Other)
  Sender: FDA-Public Use
  Company Number: JP-MSD-M2022-06057

PATIENT
  Age: 48 Year
  Sex: Male

DRUGS (5)
  1. MOLNUPIRAVIR [Suspect]
     Active Substance: MOLNUPIRAVIR
     Indication: COVID-19 treatment
     Dosage: 800 MILLIGRAM, TWICE A DAY
     Route: 048
     Dates: start: 20220210, end: 20220212
  2. CALONAL [Concomitant]
     Active Substance: ACETAMINOPHEN
     Indication: Pyrexia
     Dosage: 200 MILLIGRAM, PRN
     Route: 048
     Dates: start: 20220210
  3. CALONAL [Concomitant]
     Active Substance: ACETAMINOPHEN
     Indication: Pain
  4. SHOSAIKOTO [BUPLEURUM FALCATUM ROOT;GLYCYRRHIZA SPP. ROOT;PANAX GINSEN [Concomitant]
     Indication: Inflammation
     Dosage: 2.5 GRAM, TID
     Route: 048
     Dates: start: 20220210
  5. SHOSAIKOTOKAKIKYOSEKKO [Concomitant]
     Indication: Tonsillitis
     Dosage: 2.5 GRAM, TID
     Route: 048
     Dates: start: 20220210

REACTIONS (1)
  - Toxic skin eruption [Unknown]

NARRATIVE: CASE EVENT DATE: 20220213
